FAERS Safety Report 4519544-7 (Version None)
Quarter: 2004Q4

REPORT INFORMATION
  Report Type: 
  Country: None (occurrence: None)
  Receive Date: 20041206
  Receipt Date: 20041126
  Transmission Date: 20050328
  Serious: Yes (Disabling)
  Sender: FDA-Public Use
  Company Number: GB-MERCK-0411GBR00265

PATIENT
  Age: 72 Year
  Sex: Male
  Weight: 108 kg

DRUGS (3)
  1. ZOCOR [Suspect]
     Indication: BLOOD CHOLESTEROL INCREASED
     Route: 048
     Dates: start: 20021007, end: 20040427
  2. METFORMIN [Concomitant]
     Route: 065
     Dates: start: 19990101
  3. GLYBURIDE [Concomitant]
     Route: 065
     Dates: start: 20040404

REACTIONS (1)
  - TENDONITIS [None]
